FAERS Safety Report 7348568-X (Version None)
Quarter: 2011Q1

REPORT INFORMATION
  Report Type: 
  Country: None (occurrence: None)
  Receive Date: 20110314
  Receipt Date: 20110303
  Transmission Date: 20110831
  Serious: Yes (Death, Hospitalization)
  Sender: FDA-Public Use
  Company Number: US-BIOGENIDEC-2010BI036181

PATIENT
  Sex: Female

DRUGS (3)
  1. AVONEX [Suspect]
     Route: 030
     Dates: start: 20030801, end: 20090301
  2. AVONEX [Suspect]
     Route: 030
     Dates: start: 19991201, end: 20030801
  3. AVONEX [Suspect]
     Indication: MULTIPLE SCLEROSIS
     Route: 030
     Dates: start: 20100203

REACTIONS (3)
  - PANCREATIC CARCINOMA [None]
  - INTESTINAL OBSTRUCTION [None]
  - DYSPHAGIA [None]
